FAERS Safety Report 8561604-8 (Version None)
Quarter: 2012Q3

REPORT INFORMATION
  Report Type: 
  Country: None (occurrence: None)
  Receive Date: 20120727
  Receipt Date: 20120727
  Transmission Date: 20120928
  Serious: Yes (Hospitalization)
  Sender: FDA-Public Use
  Company Number: None

PATIENT
  Age: 86 Year
  Sex: Female
  Weight: 66.5 kg

DRUGS (10)
  1. METOPROLOL TARTRATE [Concomitant]
  2. DILTIAZEM [Concomitant]
  3. LEVOXYL [Concomitant]
  4. ACTONEL [Concomitant]
  5. VITAMIN B-12 [Concomitant]
  6. COUMADIN [Suspect]
     Indication: ATRIAL FIBRILLATION
     Dosage: 3MG QPM PO CHRONIC
     Route: 048
  7. VITAMIN D [Concomitant]
  8. IBUPROFEN [Suspect]
     Indication: OSTEOARTHRITIS
     Dosage: 200MG QHS PO CHRONIC
     Route: 048
  9. ICAPS [Concomitant]
  10. LASIX [Concomitant]

REACTIONS (5)
  - EROSIVE DUODENITIS [None]
  - MELAENA [None]
  - ANAEMIA [None]
  - DUODENITIS HAEMORRHAGIC [None]
  - INTERNATIONAL NORMALISED RATIO INCREASED [None]
